FAERS Safety Report 16129545 (Version 1)
Quarter: 2019Q1

REPORT INFORMATION
  Report Type: Spontaneous
  Country: US (occurrence: US)
  Receive Date: 20190328
  Receipt Date: 20190328
  Transmission Date: 20190418
  Serious: No
  Sender: FDA-Public Use
  Company Number: US-GILEAD-2019-0399072

PATIENT
  Age: 70 Year
  Sex: Female

DRUGS (7)
  1. EPCLUSA [Suspect]
     Active Substance: SOFOSBUVIR\VELPATASVIR
     Indication: CHRONIC HEPATITIS C
     Dosage: 1 DF
     Route: 048
     Dates: start: 201901
  2. HYDROCODONE/ACETAMINOPHEN [Concomitant]
     Active Substance: ACETAMINOPHEN\HYDROCODONE
  3. IRON [Concomitant]
     Active Substance: IRON
  4. POTASSIUM [Concomitant]
     Active Substance: POTASSIUM
  5. CENTRUM WOMEN [Concomitant]
     Active Substance: VITAMINS
  6. LYRICA [Concomitant]
     Active Substance: PREGABALIN
  7. CARVEDILOL. [Concomitant]
     Active Substance: CARVEDILOL

REACTIONS (1)
  - Product dose omission [Unknown]
